FAERS Safety Report 10191423 (Version 1)
Quarter: 2014Q2

REPORT INFORMATION
  Report Type: Spontaneous
  Country: US (occurrence: US)
  Receive Date: 20140523
  Receipt Date: 20140523
  Transmission Date: 20141212
  Serious: Yes (Other)
  Sender: FDA-Public Use
  Company Number: US-PFIZER INC-2014138503

PATIENT
  Age: 47 Year
  Sex: Female
  Weight: 81.18 kg

DRUGS (1)
  1. NEURONTIN [Suspect]
     Indication: NEURALGIA
     Dosage: 650 MG, 2X/DAY
     Route: 048
     Dates: start: 2013, end: 201405

REACTIONS (1)
  - Weight decreased [Unknown]
